FAERS Safety Report 5898013-6 (Version None)
Quarter: 2008Q3

REPORT INFORMATION
  Report Type: 
  Country: None (occurrence: None)
  Receive Date: 20080924
  Receipt Date: 20080924
  Transmission Date: 20090109
  Serious: Yes (Hospitalization)
  Sender: FDA-Public Use
  Company Number: None

PATIENT
  Age: 49 Year
  Sex: Male

DRUGS (1)
  1. DIVALPROEX SODIUM [Suspect]
     Dosage: 750 MG HS PO
     Route: 048
     Dates: start: 20080716, end: 20080818

REACTIONS (5)
  - AMMONIA INCREASED [None]
  - CONFUSIONAL STATE [None]
  - FALL [None]
  - SEDATION [None]
  - SOMNOLENCE [None]
